FAERS Safety Report 6821305-0 (Version None)
Quarter: 2010Q3

REPORT INFORMATION
  Report Type: 
  Country: None (occurrence: None)
  Receive Date: 20100707
  Receipt Date: 20080623
  Transmission Date: 20110219
  Serious: No
  Sender: FDA-Public Use
  Company Number: US-PFIZER INC-2008052568

PATIENT
  Sex: Female

DRUGS (3)
  1. ZOLOFT [Suspect]
  2. ATENOLOL [Suspect]
  3. ARICEPT [Suspect]

REACTIONS (2)
  - AGGRESSION [None]
  - HOSTILITY [None]
